FAERS Safety Report 7519200-7 (Version None)
Quarter: 2011Q2

REPORT INFORMATION
  Report Type: 
  Country: None (occurrence: None)
  Receive Date: 20110602
  Receipt Date: 20110405
  Transmission Date: 20111010
  Serious: No
  Sender: FDA-Public Use
  Company Number: US-BRISTOL-MYERS SQUIBB COMPANY-15654551

PATIENT
  Age: 8 Decade
  Sex: Female

DRUGS (2)
  1. ACTOS [Suspect]
     Dosage: 1DF= 15/875 UNIT NOT GIVEN.
  2. KOMBIGLYZE XR [Suspect]
     Dosage: 1DF= 5/500 UNIT NOT GIVEN.
     Dates: start: 20110101

REACTIONS (1)
  - LIVER FUNCTION TEST ABNORMAL [None]
